FAERS Safety Report 5328679-0 (Version None)
Quarter: 2007Q2

REPORT INFORMATION
  Report Type: 
  Country: None (occurrence: None)
  Receive Date: 20070518
  Receipt Date: 20070516
  Transmission Date: 20071010
  Serious: Yes (Other)
  Sender: FDA-Public Use
  Company Number: A0651824A

PATIENT
  Age: 60 Year
  Sex: Female

DRUGS (2)
  1. TYKERB [Suspect]
     Route: 048
     Dates: start: 20070101
  2. XELODA [Concomitant]

REACTIONS (4)
  - ASTHENIA [None]
  - DIARRHOEA [None]
  - LOSS OF CONSCIOUSNESS [None]
  - VOMITING [None]
